FAERS Safety Report 9686127 (Version 1)
Quarter: 2013Q4

REPORT INFORMATION
  Report Type: Report from Study
  Country: AR (occurrence: AR)
  Receive Date: 20131113
  Receipt Date: 20131113
  Transmission Date: 20140711
  Serious: Yes (Hospitalization, Other)
  Sender: FDA-Public Use
  Company Number: PHHY2013AR129365

PATIENT
  Age: 78 Year
  Sex: Female

DRUGS (2)
  1. DIOVAN [Suspect]
     Indication: HYPERTENSION
     Dosage: 1 DF (320MG), DAILY
     Route: 048
     Dates: start: 2012, end: 201309
  2. DIOVAN [Suspect]
     Dosage: 0.5 DF (320MG), DAILY
     Route: 048
     Dates: start: 201309

REACTIONS (4)
  - Chest pain [Recovered/Resolved]
  - Aortic disorder [Not Recovered/Not Resolved]
  - Hypertension [Recovered/Resolved]
  - Wrong technique in drug usage process [Not Recovered/Not Resolved]
